FAERS Safety Report 10245051 (Version 1)
Quarter: 2014Q2

REPORT INFORMATION
  Report Type: Spontaneous
  Country: US (occurrence: US)
  Receive Date: 20140618
  Receipt Date: 20140618
  Transmission Date: 20141212
  Serious: No
  Sender: FDA-Public Use
  Company Number: US-GALDERMA-US14000920

PATIENT
  Age: 63 Year
  Sex: Female

DRUGS (6)
  1. MIRVASO (BRIMONIDINE) TOPICAL GEL, 0.33% [Suspect]
     Indication: ROSACEA
     Dosage: 0.33%
     Route: 061
     Dates: start: 20140201, end: 20140225
  2. LEVOTHYROXINE [Concomitant]
     Indication: HYPOTHYROIDISM
     Dosage: 88 MCG
     Route: 048
  3. DIOVAN [Concomitant]
     Indication: BLOOD PRESSURE
     Dosage: 40 MG
     Route: 048
  4. MULTIVITAMIN [Concomitant]
     Route: 048
  5. VITAMIN B [Concomitant]
     Route: 048
  6. MINOCYCLINE [Concomitant]
     Indication: ROSACEA
     Dosage: 100 MG
     Route: 048
     Dates: start: 20140201

REACTIONS (4)
  - Rebound effect [Recovered/Resolved]
  - Flushing [Recovered/Resolved]
  - Erythema [Recovered/Resolved]
  - Skin burning sensation [Recovered/Resolved]
